FAERS Safety Report 24575428 (Version 1)
Quarter: 2024Q4

REPORT INFORMATION
  Report Type: Spontaneous
  Country: US (occurrence: US)
  Receive Date: 20241104
  Receipt Date: 20241104
  Transmission Date: 20250115
  Serious: No
  Sender: PAREXEL
  Company Number: US-SCPHARMACEUTICALS-2024-SCPH-US000522

PATIENT

DRUGS (2)
  1. FUROSCIX [Suspect]
     Active Substance: FUROSEMIDE
     Indication: Hypervolaemia
     Dosage: UNK
     Route: 058
     Dates: start: 20240829, end: 20240829
  2. FUROSCIX [Suspect]
     Active Substance: FUROSEMIDE
     Dosage: UNK
     Route: 058
     Dates: start: 20240830, end: 20240830

REACTIONS (2)
  - Infusion site pain [Recovered/Resolved]
  - Drug effect less than expected [Unknown]

NARRATIVE: CASE EVENT DATE: 20240830
